FAERS Safety Report 4667524-3 (Version None)
Quarter: 2005Q2

REPORT INFORMATION
  Report Type: 
  Country: None (occurrence: None)
  Receive Date: 20050519
  Receipt Date: 20050519
  Transmission Date: 20051028
  Serious: Yes (Disabling)
  Sender: FDA-Public Use
  Company Number: None

PATIENT
  Age: 51 Year
  Sex: Female
  Weight: 58.9676 kg

DRUGS (1)
  1. PAMIDRONATE    30MG [Suspect]
     Indication: MULTIPLE MYELOMA
     Dosage: 90MG   MONTHLY   INTRAVENOU
     Route: 042
     Dates: start: 19961101, end: 20021211

REACTIONS (6)
  - FACIAL PAIN [None]
  - GLOSSODYNIA [None]
  - JAW DISORDER [None]
  - OSTEONECROSIS [None]
  - PAIN IN JAW [None]
  - POST PROCEDURAL COMPLICATION [None]
